FAERS Safety Report 7630227-7 (Version None)
Quarter: 2011Q3

REPORT INFORMATION
  Report Type: 
  Country: None (occurrence: None)
  Receive Date: 20110722
  Receipt Date: 20110711
  Transmission Date: 20111222
  Serious: Yes (Hospitalization, Other)
  Sender: FDA-Public Use
  Company Number: US-BAYER-2011-037982

PATIENT
  Age: 37 Year
  Sex: Female
  Weight: 108.39 kg

DRUGS (29)
  1. KLONOPIN [Concomitant]
     Indication: MUSCLE SPASMS
  2. MIGRAZONE [Concomitant]
     Indication: MIGRAINE
     Dosage: UNK
     Dates: start: 20050101
  3. KLONOPIN [Concomitant]
     Indication: INSOMNIA
     Dosage: UNK UNK, QD
     Dates: start: 20050114
  4. YASMIN [Suspect]
     Indication: POLYCYSTIC OVARIES
  5. CLONAZEPAM [Concomitant]
     Indication: ANXIETY
     Dosage: UNK
     Dates: start: 20050101, end: 20060101
  6. FUROSEMIDE [Concomitant]
     Indication: POLYURIA
     Dosage: UNK
     Dates: start: 20050101, end: 20100101
  7. MOBIC [Concomitant]
     Indication: INFLAMMATION
  8. IBUPROFEN [Concomitant]
     Dosage: UNK
     Dates: start: 20100101
  9. MELOXICAM [Concomitant]
     Dosage: UNK
     Dates: start: 20100101
  10. LIDODERM [Concomitant]
     Indication: ARTHRALGIA
     Dosage: UNK
     Dates: start: 20050101, end: 20100101
  11. MOBIC [Concomitant]
     Indication: PAIN
     Dosage: UNK
     Dates: start: 20050101
  12. MELOXICAM [Concomitant]
     Dosage: UNK
     Dates: start: 20050101
  13. METFORMIN HCL [Concomitant]
     Indication: DIABETES MELLITUS
     Dosage: UNK
     Dates: start: 20050101, end: 20100101
  14. BACLOFEN [Concomitant]
     Indication: MUSCLE RELAXANT THERAPY
     Dosage: UNK
     Dates: start: 20050101
  15. LISINOPRIL [Concomitant]
     Indication: HYPERTENSION
     Dosage: 5 MG, QD
     Dates: start: 20050115, end: 20051201
  16. IBUPROFEN [Concomitant]
     Dosage: UNK
     Dates: start: 20090101
  17. YASMIN [Suspect]
     Indication: CONTRACEPTION
     Dosage: UNK
     Dates: start: 20010101, end: 20050115
  18. ASPIRIN [Concomitant]
     Dosage: UNK
     Dates: start: 20050101
  19. FIORICET [Concomitant]
     Indication: MIGRAINE
     Dosage: UNK
     Dates: start: 20050101
  20. IBUPROFEN [Concomitant]
     Dosage: UNK
     Dates: start: 20050101
  21. BUTAL/APAP/CAF [Concomitant]
     Dosage: UNK
     Dates: start: 20090101, end: 20100101
  22. JANUVIA [Concomitant]
     Indication: DIABETES MELLITUS
     Dosage: UNK
     Dates: start: 20020101
  23. NEO/POLY DROPS 1% [Concomitant]
     Dosage: UNK UNK, HS
     Dates: start: 20050101
  24. BUTAL/APAP/CAF [Concomitant]
     Indication: MIGRAINE
     Dosage: UNK
     Dates: start: 20050101, end: 20070101
  25. ZYRTEC [Concomitant]
     Indication: SEASONAL ALLERGY
     Dosage: UNK
     Dates: start: 20050101, end: 20100101
  26. ALLEGRA [Concomitant]
     Indication: SEASONAL ALLERGY
     Dosage: UNK
     Dates: start: 20050101
  27. ALLEGRA [Concomitant]
     Dosage: UNK
     Dates: start: 20080101
  28. OMEPRAZOLE [Concomitant]
     Indication: GASTRIC PH DECREASED
     Dosage: 20 MG, QD
     Dates: start: 20050101, end: 20090101
  29. PERCOCET [Concomitant]
     Indication: PAIN IN EXTREMITY
     Dosage: UNK
     Dates: start: 20010101

REACTIONS (5)
  - FEAR [None]
  - OEDEMA PERIPHERAL [None]
  - MUSCLE SPASMS [None]
  - DEEP VEIN THROMBOSIS [None]
  - PAIN IN EXTREMITY [None]
